FAERS Safety Report 4303962-6 (Version None)
Quarter: 2004Q1

REPORT INFORMATION
  Report Type: 
  Country: None (occurrence: None)
  Receive Date: 20040223
  Receipt Date: 20031205
  Transmission Date: 20041129
  Serious: No
  Sender: FDA-Public Use
  Company Number: PHEH2003US08872

PATIENT
  Age: 27 Year
  Sex: Female
  Weight: 57.1 kg

DRUGS (1)
  1. ZELNORM [Suspect]
     Indication: IRRITABLE BOWEL SYNDROME
     Dates: start: 20030823, end: 20031024

REACTIONS (2)
  - ABNORMAL FAECES [None]
  - FLATULENCE [None]
